FAERS Safety Report 10103316 (Version 2)
Quarter: 2014Q2

REPORT INFORMATION
  Report Type: Spontaneous
  Country: US (occurrence: US)
  Receive Date: 20140424
  Receipt Date: 20140620
  Transmission Date: 20141212
  Serious: No
  Sender: FDA-Public Use
  Company Number: US-BRISTOL-MYERS SQUIBB COMPANY-20243549

PATIENT
  Age: 63 Year
  Sex: Female
  Weight: 79.36 kg

DRUGS (1)
  1. ELIQUIS [Suspect]
     Dosage: SHE TAKEN  ELIQUIS 5 MG BETWEEN 10-11 AM AND 10-11 PM
     Route: 048

REACTIONS (1)
  - Drug dose omission [Unknown]
